FAERS Safety Report 10064571 (Version 1)
Quarter: 2014Q2

REPORT INFORMATION
  Report Type: Spontaneous
  Country: US (occurrence: None)
  Receive Date: 20140407
  Receipt Date: 20140407
  Transmission Date: 20141212
  Serious: Yes (Other)
  Sender: FDA-Public Use
  Company Number: None

PATIENT
  Age: 58 Year
  Sex: Female
  Weight: 63.5 kg

DRUGS (2)
  1. FORTEO [Suspect]
     Indication: OSTEOPOROSIS
     Dosage: 1 X PER DAY  ONCE DAILY  INTO THE MUSCL
  2. FORTEO [Suspect]
     Indication: MULTIPLE FRACTURES
     Dosage: 1 X PER DAY  ONCE DAILY  INTO THE MUSCL

REACTIONS (1)
  - Muscle spasms [None]
